FAERS Safety Report 20066204 (Version 2)
Quarter: 2021Q4

REPORT INFORMATION
  Report Type: Report from Study
  Country: CA (occurrence: CA)
  Receive Date: 20211114
  Receipt Date: 20211202
  Transmission Date: 20220303
  Serious: Yes (Other)
  Sender: FDA-Public Use
  Company Number: CA-ABBVIE-21K-028-4156659-00

PATIENT
  Sex: Female

DRUGS (1)
  1. SKYRIZI [Suspect]
     Active Substance: RISANKIZUMAB-RZAA
     Indication: Psoriasis
     Route: 058
     Dates: start: 20190530

REACTIONS (5)
  - Mass [Unknown]
  - Keratoacanthoma [Recovered/Resolved]
  - Joint swelling [Recovering/Resolving]
  - Skin fissures [Unknown]
  - Dementia [Not Recovered/Not Resolved]
